FAERS Safety Report 6109408-X (Version None)
Quarter: 2009Q1

REPORT INFORMATION
  Report Type: 
  Country: None (occurrence: None)
  Receive Date: 20090310
  Receipt Date: 20090305
  Transmission Date: 20090719
  Serious: Yes (Other)
  Sender: FDA-Public Use
  Company Number: B0558223A

PATIENT
  Age: 66 Year
  Sex: Male

DRUGS (1)
  1. ARIXTRA [Suspect]
     Indication: THROMBOSIS PROPHYLAXIS
     Dosage: 2.5MG PER DAY
     Route: 058
     Dates: start: 20081230, end: 20090106

REACTIONS (2)
  - DEPRESSED LEVEL OF CONSCIOUSNESS [None]
  - POST PROCEDURAL HAEMORRHAGE [None]
